FAERS Safety Report 16844208 (Version 1)
Quarter: 2019Q3

REPORT INFORMATION
  Report Type: Spontaneous
  Country: US (occurrence: US)
  Receive Date: 20190924
  Receipt Date: 20190924
  Transmission Date: 20191005
  Serious: No
  Sender: FDA-Public Use
  Company Number: US-MYLANLABS-2019M1084250

PATIENT
  Sex: Female
  Weight: 68 kg

DRUGS (3)
  1. PREDNISONE. [Suspect]
     Active Substance: PREDNISONE
     Indication: DYSPNOEA
     Dosage: 5 MILLIGRAM, QD (ONCE A DAY)
     Route: 048
     Dates: end: 20190902
  2. CLARITIN [Concomitant]
     Active Substance: LORATADINE
     Indication: LACRIMATION INCREASED
     Dosage: 24 HOUR RELIEF ONE EVERY 24 HOURS
  3. LISINOPRIL. [Concomitant]
     Active Substance: LISINOPRIL
     Indication: HYPERTENSION
     Dosage: 40 MILLIGRAM, QD

REACTIONS (1)
  - Vision blurred [Recovered/Resolved]
